FAERS Safety Report 6667305-5 (Version None)
Quarter: 2010Q2

REPORT INFORMATION
  Report Type: 
  Country: None (occurrence: None)
  Receive Date: 20100401
  Receipt Date: 20100401
  Transmission Date: 20101027
  Serious: Yes (Other)
  Sender: FDA-Public Use
  Company Number: None

PATIENT
  Age: 1 Year
  Sex: Male
  Weight: 10.8863 kg

DRUGS (3)
  1. SINGULAIR [Suspect]
     Indication: RESPIRATORY TRACT CONGESTION
     Dosage: 4 MG ORAL GRANULES ONCE  A DAY
     Route: 048
     Dates: start: 20100219, end: 20100328
  2. SINGULAIR [Suspect]
     Indication: RHINORRHOEA
     Dosage: 4 MG ORAL GRANULES ONCE  A DAY
     Route: 048
     Dates: start: 20100219, end: 20100328
  3. SINGULAIR [Suspect]
     Indication: SEASONAL ALLERGY
     Dosage: 4 MG ORAL GRANULES ONCE  A DAY
     Route: 048
     Dates: start: 20100219, end: 20100328

REACTIONS (7)
  - ABNORMAL BEHAVIOUR [None]
  - AGGRESSION [None]
  - CRYING [None]
  - FRUSTRATION [None]
  - MIDDLE INSOMNIA [None]
  - RESTLESSNESS [None]
  - SLEEP DISORDER [None]
